FAERS Safety Report 24665181 (Version 3)
Quarter: 2025Q2

REPORT INFORMATION
  Report Type: Spontaneous
  Country: US (occurrence: US)
  Receive Date: 20241126
  Receipt Date: 20250403
  Transmission Date: 20250717
  Serious: Yes (Hospitalization)
  Sender: SANOFI AVENTIS
  Company Number: US-SA-2024SA343508

PATIENT
  Age: 84 Year
  Sex: Female

DRUGS (2)
  1. DUPIXENT [Suspect]
     Active Substance: DUPILUMAB
     Indication: Dermatitis atopic
  2. DUPIXENT [Suspect]
     Active Substance: DUPILUMAB

REACTIONS (2)
  - Fall [Unknown]
  - Cough [Unknown]
